FAERS Safety Report 8080779-0 (Version None)
Quarter: 2012Q1

REPORT INFORMATION
  Report Type: 
  Country: None (occurrence: None)
  Receive Date: 20120130
  Receipt Date: 20120126
  Transmission Date: 20120608
  Serious: Yes (Life-Threatening, Hospitalization)
  Sender: FDA-Public Use
  Company Number: NL-GENZYME-CLOF-1001983

PATIENT
  Sex: Male
  Weight: 119 kg

DRUGS (3)
  1. CYTARABINE [Suspect]
     Indication: HAEMATOLOGICAL MALIGNANCY
     Dosage: 2400 MG, BID
     Route: 042
     Dates: start: 20110409, end: 20110414
  2. AMSACRINE [Suspect]
     Indication: HAEMATOLOGICAL MALIGNANCY
     Dosage: 295 MG, UNK
     Route: 042
     Dates: start: 20110412, end: 20110414
  3. EVOLTRA [Suspect]
     Indication: HAEMATOLOGICAL MALIGNANCY
     Dosage: 24 MG, UNK
     Route: 042
     Dates: start: 20110409, end: 20110413

REACTIONS (1)
  - ACUTE RESPIRATORY FAILURE [None]
